FAERS Safety Report 22748787 (Version 4)
Quarter: 2024Q4

REPORT INFORMATION
  Report Type: Spontaneous
  Country: IN (occurrence: IN)
  Receive Date: 20230725
  Receipt Date: 20241210
  Transmission Date: 20250115
  Serious: Yes (Other)
  Sender: PFIZER
  Company Number: IN-PFIZER INC-202200243628

PATIENT
  Age: 44 Year
  Sex: Female

DRUGS (1)
  1. CRIZOTINIB [Suspect]
     Active Substance: CRIZOTINIB
     Indication: Lung neoplasm malignant
     Dosage: 250 MG, 2X/DAY
     Route: 048
     Dates: start: 20210316

REACTIONS (7)
  - Limb injury [Unknown]
  - Fracture [Unknown]
  - Pyrexia [Unknown]
  - Neoplasm progression [Unknown]
  - Swelling [Unknown]
  - Cough [Unknown]
  - Arthralgia [Unknown]
